FAERS Safety Report 5243842-5 (Version None)
Quarter: 2007Q1

REPORT INFORMATION
  Report Type: 
  Country: None (occurrence: None)
  Receive Date: 20070220
  Receipt Date: 20070220
  Transmission Date: 20070707
  Serious: Yes (Hospitalization)
  Sender: FDA-Public Use
  Company Number: None

PATIENT
  Age: 75 Year
  Sex: Male
  Weight: 96.8 kg

DRUGS (1)
  1. COMMIT [Suspect]
     Indication: SMOKING CESSATION THERAPY
     Dosage: 3-5 TABLETS DAILY BUCCAL
     Route: 002
     Dates: start: 20070110, end: 20070209

REACTIONS (8)
  - CEREBRAL ISCHAEMIA [None]
  - DIPLOPIA [None]
  - LACUNAR INFARCTION [None]
  - MORAXELLA INFECTION [None]
  - PRODUCTIVE COUGH [None]
  - SPUTUM CULTURE POSITIVE [None]
  - TREATMENT NONCOMPLIANCE [None]
  - UPPER MOTOR NEURONE LESION [None]
